FAERS Safety Report 12327177 (Version 1)
Quarter: 2016Q2

REPORT INFORMATION
  Report Type: Spontaneous
  Country: US (occurrence: None)
  Receive Date: 20160502
  Receipt Date: 20160502
  Transmission Date: 20160815
  Serious: No
  Sender: FDA-Public Use
  Company Number: None

PATIENT
  Age: 18 Year
  Sex: Male
  Weight: 108.86 kg

DRUGS (2)
  1. CLEARASIL ULTRA RAPID ACTION PADS [Suspect]
     Active Substance: SALICYLIC ACID
     Indication: ACNE
     Dosage: 2 PATCH (ES)  AS NEEDED APPLIED TO A SURFACE, USUALLY THE SKIN
     Route: 062
     Dates: start: 20160428, end: 20160429
  2. CLEARASIL ULTRA RAPID ACTION PADS [Suspect]
     Active Substance: SALICYLIC ACID
     Indication: ERYTHEMA
     Dosage: 2 PATCH (ES)  AS NEEDED APPLIED TO A SURFACE, USUALLY THE SKIN
     Route: 062
     Dates: start: 20160428, end: 20160429

REACTIONS (2)
  - Application site erythema [None]
  - Application site pain [None]

NARRATIVE: CASE EVENT DATE: 20160428
